FAERS Safety Report 14015562 (Version 1)
Quarter: 2017Q3

REPORT INFORMATION
  Report Type: Spontaneous
  Country: US (occurrence: None)
  Receive Date: 20170927
  Receipt Date: 20170927
  Transmission Date: 20171128
  Serious: No
  Sender: FDA-Public Use
  Company Number: None

PATIENT
  Age: 66 Year
  Sex: Female

DRUGS (1)
  1. ENBREL [Suspect]
     Active Substance: ETANERCEPT

REACTIONS (4)
  - Injection site pruritus [None]
  - Injection site swelling [None]
  - Injection site warmth [None]
  - Injection site erythema [None]

NARRATIVE: CASE EVENT DATE: 20170927
